FAERS Safety Report 8238171-1 (Version None)
Quarter: 2012Q1

REPORT INFORMATION
  Report Type: 
  Country: None (occurrence: None)
  Receive Date: 20120327
  Receipt Date: 20120327
  Transmission Date: 20120608
  Serious: Yes (Other)
  Sender: FDA-Public Use
  Company Number: CN-ROCHE-1052765

PATIENT
  Age: 63 Year
  Sex: Male
  Weight: 50 kg

DRUGS (1)
  1. XELODA [Suspect]
     Indication: RECTAL CANCER
     Route: 048
     Dates: start: 20110601

REACTIONS (1)
  - METASTASES TO LUNG [None]
